FAERS Safety Report 8473382 (Version 3)
Quarter: 2013Q4

REPORT INFORMATION
  Report Type: Spontaneous
  Country: GB (occurrence: GB)
  Receive Date: 20120323
  Receipt Date: 20131129
  Transmission Date: 20140711
  Serious: Yes (Other)
  Sender: FDA-Public Use
  Company Number: GB-JNJFOC-20120308594

PATIENT
  Sex: Female

DRUGS (2)
  1. DUROGESIC DTRANS [Suspect]
     Indication: PAIN
     Route: 062
  2. DUROGESIC DTRANS [Suspect]
     Indication: PAIN
     Route: 062

REACTIONS (5)
  - Drug diversion [Unknown]
  - Drug ineffective [Unknown]
  - Pyrexia [Unknown]
  - Wrong technique in drug usage process [Unknown]
  - Product adhesion issue [Unknown]
